FAERS Safety Report 7190756-X (Version None)
Quarter: 2010Q4

REPORT INFORMATION
  Report Type: 
  Country: None (occurrence: None)
  Receive Date: 20101223
  Receipt Date: 20101216
  Transmission Date: 20110411
  Serious: Yes (Other)
  Sender: FDA-Public Use
  Company Number: US-US-EMD SERONO, INC.-7017175

PATIENT
  Sex: Female

DRUGS (5)
  1. REBIF [Suspect]
     Indication: MULTIPLE SCLEROSIS
     Route: 058
     Dates: start: 20100730
  2. STEROID [Suspect]
     Indication: MULTIPLE SCLEROSIS RELAPSE
     Route: 042
     Dates: start: 20101204
  3. LAMICTAL [Concomitant]
     Indication: CONVULSION
     Dates: start: 20090101
  4. OXYCONTIN [Concomitant]
     Indication: PAIN
  5. MIDODRINE HYDROCHLORIDE [Concomitant]
     Indication: HYPOTENSION

REACTIONS (3)
  - CONVERSION DISORDER [None]
  - CONVULSION [None]
  - MULTIPLE SCLEROSIS RELAPSE [None]
